FAERS Safety Report 8552320-7 (Version None)
Quarter: 2012Q3

REPORT INFORMATION
  Report Type: 
  Country: None (occurrence: None)
  Receive Date: 20120723
  Receipt Date: 20120723
  Transmission Date: 20120928
  Serious: Yes (Hospitalization)
  Sender: FDA-Public Use
  Company Number: None

PATIENT
  Sex: Female
  Weight: 106.8 kg

DRUGS (9)
  1. ASPIRIN [Concomitant]
  2. CARBOPLATIN [Suspect]
     Indication: BREAST CANCER
     Dates: start: 20120718
  3. CARBOPLATIN [Suspect]
     Indication: BREAST CANCER
     Dates: start: 20120626
  4. SYNTHROID [Concomitant]
  5. ERIBULIN 1.4MG/M2 D 1 + 8 IV PUSH [Suspect]
     Indication: BREAST CANCER
     Dates: start: 20120626
  6. ERIBULIN 1.4MG/M2 D 1 + 8 IV PUSH [Suspect]
     Indication: BREAST CANCER
     Dates: start: 20120718
  7. ERIBULIN 1.4MG/M2 D 1 + 8 IV PUSH [Suspect]
     Indication: BREAST CANCER
     Dates: start: 20120703
  8. ACIPHEX [Concomitant]
  9. IBUPROFEN [Concomitant]

REACTIONS (2)
  - INFECTION [None]
  - PYREXIA [None]
